FAERS Safety Report 4883674-0 (Version None)
Quarter: 2006Q1

REPORT INFORMATION
  Report Type: 
  Country: None (occurrence: None)
  Receive Date: 20060117
  Receipt Date: 20060117
  Transmission Date: 20060701
  Serious: Yes (Life-Threatening)
  Sender: FDA-Public Use
  Company Number: None

PATIENT
  Age: 78 Year
  Sex: Female
  Weight: 59 kg

DRUGS (17)
  1. LEVAQUIN [Suspect]
     Indication: SEPSIS
     Dosage: 500 MG   DAILY   IV
     Route: 042
     Dates: start: 20050112, end: 20060113
  2. LEVAQUIN [Suspect]
     Indication: URINARY TRACT INFECTION
     Dosage: 500 MG   DAILY   IV
     Route: 042
     Dates: start: 20050112, end: 20060113
  3. LEVAQUIN [Suspect]
     Indication: SEPSIS
     Dosage: 250 MG   DAILY   IV
     Route: 042
     Dates: start: 20060113, end: 20060114
  4. LEVAQUIN [Suspect]
     Indication: URINARY TRACT INFECTION
     Dosage: 250 MG   DAILY   IV
     Route: 042
     Dates: start: 20060113, end: 20060114
  5. PHENERGAN [Concomitant]
  6. DEMEROL [Concomitant]
  7. LOVENOX [Concomitant]
  8. LANTUS [Concomitant]
  9. OXYCODONE [Concomitant]
  10. PROCRIT [Concomitant]
  11. AVALIDE [Concomitant]
  12. NORVASC [Concomitant]
  13. TOPROL-XL [Concomitant]
  14. PEPCID [Concomitant]
  15. DURAGESIC-100 [Concomitant]
  16. MEGERTROL SUSP [Concomitant]
  17. REMERON [Concomitant]

REACTIONS (4)
  - ATRIAL FIBRILLATION [None]
  - BILE DUCT OBSTRUCTION [None]
  - HEPATIC ENZYME ABNORMAL [None]
  - JAUNDICE [None]
